FAERS Safety Report 23633629 (Version 4)
Quarter: 2025Q4

REPORT INFORMATION
  Report Type: Spontaneous
  Country: EU (occurrence: EU)
  Receive Date: 20240314
  Receipt Date: 20251114
  Transmission Date: 20260118
  Serious: Yes (Death, Hospitalization, Other)
  Sender: BIOVITRUM
  Company Number: EU-ASTELLAS-2021US022517

PATIENT
  Age: 68 Year
  Sex: Male

DRUGS (36)
  1. ANAKINRA [Suspect]
     Active Substance: ANAKINRA
     Indication: Dermatitis
     Dosage: 100 MILLIGRAM DAILY;
  2. ANAKINRA [Suspect]
     Active Substance: ANAKINRA
     Indication: Stomatitis
     Dosage: 100 MILLIGRAM DAILY; (D203)
  3. ANAKINRA [Suspect]
     Active Substance: ANAKINRA
     Indication: Dry eye
  4. ANAKINRA [Suspect]
     Active Substance: ANAKINRA
     Indication: Immunosuppressant drug therapy
  5. PREDNISOLONE [Suspect]
     Active Substance: PREDNISOLONE
     Indication: Stomatitis
     Dosage: 40 MG, ONCE DAILY (D118-152)
  6. PREDNISOLONE [Suspect]
     Active Substance: PREDNISOLONE
     Indication: Dry eye
     Dosage: 20 MG, ONCE DAILY (D86-100)
  7. PREDNISOLONE [Suspect]
     Active Substance: PREDNISOLONE
     Indication: Dermatitis
     Dosage: 100 MG, ONCE DAILY  (D84) (D164)(78) (D106) (D107)
  8. PREDNISOLONE [Suspect]
     Active Substance: PREDNISOLONE
     Indication: Immunosuppressant drug therapy
     Dosage: 5 MG, ONCE DAILY (D186-239)
  9. PREDNISOLONE [Suspect]
     Active Substance: PREDNISOLONE
  10. PREDNISOLONE [Suspect]
     Active Substance: PREDNISOLONE
     Dosage: 30 MG, ONCE DAILY (D159)
  11. PREDNISOLONE [Suspect]
     Active Substance: PREDNISOLONE
     Dosage: 50 MG, ONCE DAILY (D161)
  12. PREDNISOLONE [Suspect]
     Active Substance: PREDNISOLONE
  13. PREDNISOLONE [Suspect]
     Active Substance: PREDNISOLONE
     Dosage: 70 MG, ONCE DAILY (D173-179)
  14. PREDNISOLONE [Suspect]
     Active Substance: PREDNISOLONE
  15. PREDNISOLONE [Suspect]
     Active Substance: PREDNISOLONE
     Dosage: 10 MG, ONCE DAILY (D77)
  16. PREDNISOLONE [Suspect]
     Active Substance: PREDNISOLONE
     Dosage: 180 MG, TOTAL DOSE (D106)
  17. BENDAMUSTINE HYDROCHLORIDE [Suspect]
     Active Substance: BENDAMUSTINE HYDROCHLORIDE
     Indication: Follicular lymphoma stage IV
     Dosage: UNK UNK, CYCLIC
     Dates: start: 2013
  18. BENDAMUSTINE HYDROCHLORIDE [Suspect]
     Active Substance: BENDAMUSTINE HYDROCHLORIDE
     Dosage: UNK UNK, CYCLIC
     Dates: start: 2016
  19. CYCLOSPORINE [Suspect]
     Active Substance: CYCLOSPORINE
     Indication: Stomatitis
     Dosage: UNK UNK, UNKNOWN FREQ.
  20. CYCLOSPORINE [Suspect]
     Active Substance: CYCLOSPORINE
     Indication: Dermatitis
  21. CYCLOSPORINE [Suspect]
     Active Substance: CYCLOSPORINE
     Indication: Dry eye
  22. CYCLOSPORINE [Suspect]
     Active Substance: CYCLOSPORINE
     Indication: Immunosuppressant drug therapy
  23. TACROLIMUS [Suspect]
     Active Substance: TACROLIMUS
     Indication: Dry eye
     Dosage: 1 MG, ONCE DAILY (D164)
  24. TACROLIMUS [Suspect]
     Active Substance: TACROLIMUS
     Indication: Dermatitis
     Dosage: 1 MILLIGRAM DAILY; 4-6 UG/L
  25. TACROLIMUS [Suspect]
     Active Substance: TACROLIMUS
     Indication: Stomatitis
  26. TACROLIMUS [Suspect]
     Active Substance: TACROLIMUS
     Indication: Immunosuppressant drug therapy
  27. POLATUZUMAB VEDOTIN [Suspect]
     Active Substance: POLATUZUMAB VEDOTIN
     Indication: Follicular lymphoma stage IV
     Dosage: 1.8 MG/KG, CYCLIC (D1 OF C1-6)
     Dates: start: 2017
  28. INFLIXIMAB [Suspect]
     Active Substance: INFLIXIMAB
     Indication: Dry eye
     Dosage: 425 MG, TWICE WEEKLY (D112)
  29. INFLIXIMAB [Suspect]
     Active Substance: INFLIXIMAB
     Indication: Stomatitis
     Dosage: 425 MG, TWICE WEEKLY (D112)
  30. INFLIXIMAB [Suspect]
     Active Substance: INFLIXIMAB
     Indication: Dermatitis
  31. INFLIXIMAB [Suspect]
     Active Substance: INFLIXIMAB
     Indication: Immunosuppressant drug therapy
  32. OBINUTUZUMAB [Suspect]
     Active Substance: OBINUTUZUMAB
     Indication: Follicular lymphoma stage IV
     Dosage: 1000 MG, CYCLIC (D1, D8, D15 OF C1; D1 OF C2-6)
     Dates: start: 2017
  33. ATEZOLIZUMAB [Suspect]
     Active Substance: ATEZOLIZUMAB
     Indication: Follicular lymphoma stage IV
     Dosage: 1200 MG, CYCLIC  (D1 OF C2-6)
     Dates: start: 2017
  34. VENETOCLAX [Concomitant]
     Active Substance: VENETOCLAX
     Indication: Follicular lymphoma stage IV
     Dosage: UNK UNK, UNKNOWN FREQ.
     Dates: start: 2016
  35. RITUXIMAB [Concomitant]
     Active Substance: RITUXIMAB
     Indication: Follicular lymphoma stage IV
     Dosage: UNK UNK, UNKNOWN FREQ.
     Dates: start: 2016
  36. RITUXIMAB [Concomitant]
     Active Substance: RITUXIMAB
     Dosage: UNK UNK, UNKNOWN FREQ.
     Dates: start: 2013, end: 2015

REACTIONS (13)
  - Opportunistic infection [Unknown]
  - Oral fungal infection [Recovered/Resolved]
  - Oral fungal infection [Unknown]
  - Immune system disorder [Unknown]
  - Bacteraemia [Recovered/Resolved]
  - Viral infection [Recovered/Resolved]
  - Erysipelas [Recovered/Resolved]
  - Bronchopulmonary aspergillosis [Recovered/Resolved]
  - Rebound effect [Unknown]
  - Dry eye [Unknown]
  - Stomatitis [Unknown]
  - Dermatitis [Unknown]
  - Death [Fatal]
